FAERS Safety Report 9421621 (Version 2)
Quarter: 2013Q3

REPORT INFORMATION
  Report Type: Spontaneous
  Country: US (occurrence: US)
  Receive Date: 20130726
  Receipt Date: 20130830
  Transmission Date: 20140515
  Serious: No
  Sender: FDA-Public Use
  Company Number: US-BIOGENIDEC-2013BI068334

PATIENT
  Age: 36 Year
  Sex: Female

DRUGS (2)
  1. TYSABRI [Suspect]
     Indication: MULTIPLE SCLEROSIS
     Route: 042
     Dates: end: 20120105
  2. TYSABRI [Suspect]
     Indication: MULTIPLE SCLEROSIS
     Route: 042
     Dates: start: 20120402

REACTIONS (7)
  - Anxiety [Unknown]
  - Acne [Not Recovered/Not Resolved]
  - Petechiae [Not Recovered/Not Resolved]
  - Pain [Not Recovered/Not Resolved]
  - Local swelling [Not Recovered/Not Resolved]
  - Heart rate irregular [Recovered/Resolved]
  - Drug effect decreased [Not Recovered/Not Resolved]
